FAERS Safety Report 10386253 (Version 2)
Quarter: 2014Q3

REPORT INFORMATION
  Report Type: Report from Study
  Country: BR (occurrence: BR)
  Receive Date: 20140815
  Receipt Date: 20140815
  Transmission Date: 20150326
  Serious: Yes (Death)
  Sender: FDA-Public Use
  Company Number: PHHY2014BR100594

PATIENT
  Age: 88 Year
  Sex: Female
  Weight: 67 kg

DRUGS (2)
  1. EXELON PATCH [Suspect]
     Active Substance: RIVASTIGMINE
     Indication: MEMORY IMPAIRMENT
     Dosage: 4.6 MG, DAILY
     Route: 062
     Dates: end: 20140719
  2. EXODUS//ESCITALOPRAM OXALATE [Concomitant]
     Indication: ANXIETY
     Dosage: 5 GTT, DAILY
     Dates: end: 20140719

REACTIONS (8)
  - Septic shock [Fatal]
  - Pyrexia [Fatal]
  - Lung infection [Fatal]
  - Somnolence [Fatal]
  - Anuria [Fatal]
  - Vomiting [Fatal]
  - Malaise [Fatal]
  - Renal failure acute [Fatal]

NARRATIVE: CASE EVENT DATE: 20140719
